FAERS Safety Report 5265693-8 (Version None)
Quarter: 2007Q1

REPORT INFORMATION
  Report Type: 
  Country: None (occurrence: None)
  Receive Date: 20061213
  Receipt Date: 20040302
  Transmission Date: 20070707
  Serious: Yes (Other)
  Sender: FDA-Public Use
  Company Number: 2004UW03846

PATIENT
  Age: 40 Year
  Sex: Female
  Weight: 72.5755 kg

DRUGS (4)
  1. IRESSA [Suspect]
     Dosage: 250 MG QD PO
     Route: 048
     Dates: start: 20030501
  2. COUMADIN [Concomitant]
  3. PREVACID [Concomitant]
  4. OXYCONTIN [Concomitant]

REACTIONS (4)
  - ACNE [None]
  - DIARRHOEA [None]
  - DIZZINESS [None]
  - NAUSEA [None]
